FAERS Safety Report 8611130-2 (Version None)
Quarter: 2012Q3

REPORT INFORMATION
  Report Type: 
  Country: None (occurrence: None)
  Receive Date: 20120808
  Receipt Date: 20120726
  Transmission Date: 20120928
  Serious: Yes (Other)
  Sender: FDA-Public Use
  Company Number: MPS1-1000747

PATIENT
  Age: 19 Year
  Sex: Male
  Weight: 60 kg

DRUGS (1)
  1. ALDURAZYME [Suspect]
     Indication: MUCOPOLYSACCHARIDOSIS I
     Dosage: 0.5 MG/KG, INTRAVENOUS
     Route: 042
     Dates: start: 20030101, end: 20120608

REACTIONS (7)
  - DEVICE MALFUNCTION [None]
  - CONVULSION [None]
  - ABASIA [None]
  - ASTHENIA [None]
  - MALAISE [None]
  - VOMITING [None]
  - BLINDNESS [None]
